FAERS Safety Report 5885770-8 (Version None)
Quarter: 2008Q3

REPORT INFORMATION
  Report Type: 
  Country: None (occurrence: None)
  Receive Date: 20080916
  Receipt Date: 20080908
  Transmission Date: 20090109
  Serious: Yes (Hospitalization)
  Sender: FDA-Public Use
  Company Number: US-ELI_LILLY_AND_COMPANY-US200807004879

PATIENT
  Sex: Female

DRUGS (10)
  1. BYETTA [Suspect]
     Indication: TYPE 2 DIABETES MELLITUS
     Dosage: 10 MG, 2/D
     Route: 058
     Dates: start: 20060101
  2. ACTOS [Concomitant]
     Indication: DIABETES MELLITUS
     Dosage: 30 MG, UNK
     Dates: start: 20040101
  3. SYNTHROID [Concomitant]
     Dosage: 0.075 MG, DAILY (1/D)
     Dates: start: 19770101
  4. CYMBALTA [Concomitant]
     Indication: NEUROPATHY PERIPHERAL
     Dosage: 60 MG, 2/D
  5. LYRICA [Concomitant]
     Indication: NEUROPATHY PERIPHERAL
     Dosage: 100 MG, 3/D
  6. SIMVASTATIN [Concomitant]
     Indication: BLOOD CHOLESTEROL
     Dosage: 40 MG, DAILY (1/D)
  7. TRICOR [Concomitant]
     Indication: BLOOD CHOLESTEROL
     Dosage: 48 MG, DAILY (1/D)
  8. LOTREL [Concomitant]
     Indication: BLOOD PRESSURE
     Dosage: UNK, DAILY (1/D)
     Dates: start: 20040101
  9. ALPRAZOLAM [Concomitant]
     Indication: PROPHYLAXIS
     Dosage: 0.25 MG, 3/D
  10. CARISOPRODOL [Concomitant]
     Dosage: 36 MG, AS NEEDED

REACTIONS (4)
  - ANKLE FRACTURE [None]
  - FALL [None]
  - SOMNAMBULISM [None]
  - SURGICAL FAILURE [None]
